FAERS Safety Report 6105821-5 (Version None)
Quarter: 2009Q1

REPORT INFORMATION
  Report Type: 
  Country: None (occurrence: None)
  Receive Date: 20090305
  Receipt Date: 20090305
  Transmission Date: 20090719
  Serious: Yes (Other)
  Sender: FDA-Public Use
  Company Number: None

PATIENT
  Sex: Female
  Weight: 55.3388 kg

DRUGS (1)
  1. SIMVASTATIN [Suspect]
     Indication: BLOOD CHOLESTEROL INCREASED
     Dosage: 10MG ONE TIME 4 DAYS A WK TWO TIMES 3 DAYS A WK
     Dates: start: 20080401, end: 20090129

REACTIONS (1)
  - DRUG INEFFECTIVE [None]
